FAERS Safety Report 8196221-5 (Version None)
Quarter: 2012Q1

REPORT INFORMATION
  Report Type: 
  Country: None (occurrence: None)
  Receive Date: 20120306
  Receipt Date: 20120229
  Transmission Date: 20120608
  Serious: Yes (Death)
  Sender: FDA-Public Use
  Company Number: WAES 1001USA00888

PATIENT
  Age: 41 Year
  Sex: Male

DRUGS (12)
  1. ZERIT [Concomitant]
  2. NOVACT M [Concomitant]
  3. MS CONTIN [Concomitant]
  4. ISENTRESS [Suspect]
     Indication: HIV INFECTION
     Dosage: 400 MG/BID
     Route: 048
     Dates: start: 20070924, end: 20100104
  5. EPIVIR [Suspect]
     Indication: HIV INFECTION
     Dosage: 300 MG/DAILY 150 MG/BID 300 MG/DAILY 50 MG/DAILY
     Route: 048
     Dates: start: 20060823, end: 20100104
  6. EPIVIR [Suspect]
     Indication: HIV INFECTION
     Dosage: 300 MG/DAILY 150 MG/BID 300 MG/DAILY 50 MG/DAILY
     Route: 048
     Dates: start: 20040927, end: 20041103
  7. EPIVIR [Suspect]
     Indication: HIV INFECTION
     Dosage: 300 MG/DAILY 150 MG/BID 300 MG/DAILY 50 MG/DAILY
     Route: 048
     Dates: start: 20050216, end: 20050608
  8. EPIVIR [Suspect]
     Indication: HIV INFECTION
     Dosage: 300 MG/DAILY 150 MG/BID 300 MG/DAILY 50 MG/DAILY
     Route: 048
     Dates: start: 20010806, end: 20011021
  9. EPIVIR [Suspect]
     Indication: HIV INFECTION
     Dosage: 300 MG/DAILY 150 MG/BID 300 MG/DAILY 50 MG/DAILY
     Route: 048
     Dates: start: 20051111, end: 20060714
  10. EPIVIR [Suspect]
     Indication: HIV INFECTION
     Dosage: 300 MG/DAILY 150 MG/BID 300 MG/DAILY 50 MG/DAILY
     Route: 048
     Dates: start: 20051012, end: 20051110
  11. NORVIR [Suspect]
     Indication: HIV INFECTION
     Dosage: 100 MG/BID 600 MG/BID
     Route: 048
     Dates: start: 20070924, end: 20100104
  12. NORVIR [Suspect]
     Indication: HIV INFECTION
     Dosage: 100 MG/BID 600 MG/BID
     Route: 048
     Dates: start: 20050216, end: 20050608

REACTIONS (12)
  - PLATELET COUNT DECREASED [None]
  - HAEMATOCRIT DECREASED [None]
  - PNEUMONIA [None]
  - WHITE BLOOD CELL COUNT DECREASED [None]
  - LOSS OF CONSCIOUSNESS [None]
  - BRAIN STEM HAEMORRHAGE [None]
  - NEURALGIA [None]
  - RED BLOOD CELL COUNT DECREASED [None]
  - HYPERTENSION [None]
  - DIALYSIS [None]
  - HERPES ZOSTER [None]
  - HAEMOGLOBIN DECREASED [None]
